FAERS Safety Report 10180365 (Version 1)
Quarter: 2014Q2

REPORT INFORMATION
  Report Type: Spontaneous
  Country: US (occurrence: US)
  Receive Date: 20140519
  Receipt Date: 20140519
  Transmission Date: 20141212
  Serious: No
  Sender: FDA-Public Use
  Company Number: US-AMGEN INC.-USASP2013081192

PATIENT
  Age: 65 Year
  Sex: Female

DRUGS (5)
  1. PROLIA [Suspect]
     Indication: OSTEOPOROSIS POSTMENOPAUSAL
     Dosage: UNK
     Route: 065
  2. CITRACAL                           /00751520/ [Concomitant]
     Dosage: 2 TABLETS TWICE DAILY
  3. VITAMIN D3 [Concomitant]
     Dosage: 1000 UNIT, QD
  4. SIMVASTATIN [Concomitant]
     Indication: BLOOD CHOLESTEROL INCREASED
  5. FISH OIL [Concomitant]

REACTIONS (4)
  - Ear disorder [Unknown]
  - Throat irritation [Unknown]
  - Bone density abnormal [Unknown]
  - Hypoaesthesia oral [Unknown]
